FAERS Safety Report 7378656-3 (Version None)
Quarter: 2011Q1

REPORT INFORMATION
  Report Type: 
  Country: None (occurrence: None)
  Receive Date: 20110317
  Receipt Date: 20110304
  Transmission Date: 20110831
  Serious: Yes (Hospitalization)
  Sender: FDA-Public Use
  Company Number: 028096

PATIENT
  Sex: Male
  Weight: 55 kg

DRUGS (9)
  1. GASMOTIN [Concomitant]
  2. GASTER [Concomitant]
  3. PREDONINE [Concomitant]
  4. URSO 250 [Concomitant]
  5. PHENYTOIN [Suspect]
     Indication: EPILEPSY
     Dosage: 100 MG BID, ORAL
     Route: 048
     Dates: start: 20110129, end: 20110223
  6. SELBEX [Concomitant]
  7. KEPPRA [Suspect]
     Indication: EPILEPSY
     Dosage: 500 MG BID, ORAL
     Route: 048
     Dates: start: 20110210, end: 20110221
  8. BISOLVON [Concomitant]
  9. AMBISOME [Concomitant]

REACTIONS (5)
  - PANCYTOPENIA [None]
  - BLOOD POTASSIUM DECREASED [None]
  - DRUG ERUPTION [None]
  - BLOOD GLUCOSE INCREASED [None]
  - BODY TEMPERATURE INCREASED [None]
